FAERS Safety Report 21213472 (Version 1)
Quarter: 2022Q3

REPORT INFORMATION
  Report Type: Spontaneous
  Country: None (occurrence: US)
  Receive Date: 20220815
  Receipt Date: 20220815
  Transmission Date: 20221026
  Serious: Yes (Other)
  Sender: FDA-Public Use
  Company Number: US-Performance Health, LLC-2131913

PATIENT
  Sex: Female

DRUGS (1)
  1. BIOFREEZE [Suspect]
     Active Substance: MENTHOL
     Indication: Pain management
     Route: 061
     Dates: start: 20220721

REACTIONS (6)
  - Vision blurred [Unknown]
  - Eye discharge [Unknown]
  - Ocular hyperaemia [Unknown]
  - Glassy eyes [Unknown]
  - Accidental exposure to product [None]
  - Chemical burns of eye [None]
